FAERS Safety Report 7796585-8 (Version None)
Quarter: 2011Q4

REPORT INFORMATION
  Report Type: 
  Country: None (occurrence: None)
  Receive Date: 20111005
  Receipt Date: 20110929
  Transmission Date: 20120403
  Serious: Yes (Other)
  Sender: FDA-Public Use
  Company Number: US-PFIZER INC-2011214516

PATIENT
  Sex: Male
  Weight: 122.45 kg

DRUGS (2)
  1. PHENYTOIN [Suspect]
     Indication: CONVULSION
     Dosage: UNK
     Route: 048
     Dates: start: 20110801, end: 20110901
  2. DILANTIN [Suspect]
     Indication: CONVULSION
     Dosage: 600 MG, 1X/DAY
     Route: 048
     Dates: start: 19950101, end: 20110801

REACTIONS (7)
  - ANTICONVULSANT DRUG LEVEL BELOW THERAPEUTIC [None]
  - TONGUE BITING [None]
  - APHAGIA [None]
  - DYSPHAGIA [None]
  - HEADACHE [None]
  - CONVULSION [None]
  - PAIN [None]
